FAERS Safety Report 10525651 (Version 1)
Quarter: 2014Q4

REPORT INFORMATION
  Report Type: Spontaneous
  Country: US (occurrence: US)
  Receive Date: 20141017
  Receipt Date: 20141017
  Transmission Date: 20150528
  Serious: No
  Sender: FDA-Public Use
  Company Number: US-PFIZER INC-2014285188

PATIENT
  Age: 62 Year
  Sex: Female
  Weight: 64.85 kg

DRUGS (1)
  1. LEVOXYL [Suspect]
     Active Substance: LEVOTHYROXINE SODIUM
     Indication: HYPOTHYROIDISM
     Dosage: 112 UG, 1X/DAY
     Route: 048

REACTIONS (5)
  - Thyroid function test abnormal [Not Recovered/Not Resolved]
  - Weight increased [Unknown]
  - Blood cholesterol increased [Not Recovered/Not Resolved]
  - Alopecia [Unknown]
  - Blood triglycerides increased [Not Recovered/Not Resolved]

NARRATIVE: CASE EVENT DATE: 20141014
